FAERS Safety Report 16350059 (Version 2)
Quarter: 2019Q2

REPORT INFORMATION
  Report Type: Spontaneous
  Country: CZ (occurrence: CZ)
  Receive Date: 20190523
  Receipt Date: 20190628
  Transmission Date: 20190711
  Serious: Yes (Hospitalization)
  Sender: FDA-Public Use
  Company Number: CZ-BIOGEN-2019BI00692501

PATIENT
  Age: 36 Year
  Sex: Female

DRUGS (3)
  1. MALTOFER [Concomitant]
     Indication: PRODUCT USED FOR UNKNOWN INDICATION
     Route: 065
  2. TYSABRI [Suspect]
     Active Substance: NATALIZUMAB
     Indication: RELAPSING-REMITTING MULTIPLE SCLEROSIS
     Dosage: THE PATIENT TOOL 42 DOSES PRIOR TO PREGNANCY
     Route: 050
     Dates: start: 20140630
  3. TYSABRI [Suspect]
     Active Substance: NATALIZUMAB
     Dosage: ROUTE - INTRAVENOUS IN 100 ML PHYSIOLOGICAL SOLUTION 1/1
     Route: 042
     Dates: start: 20140731, end: 20180620

REACTIONS (3)
  - Maternal exposure during pregnancy [Recovered/Resolved]
  - Oblique presentation [Recovered/Resolved]
  - Foetal distress syndrome [Recovered/Resolved]

NARRATIVE: CASE EVENT DATE: 20190404
